FAERS Safety Report 5918240-9 (Version None)
Quarter: 2008Q3

REPORT INFORMATION
  Report Type: 
  Country: None (occurrence: None)
  Receive Date: 20080909
  Receipt Date: 20070810
  Transmission Date: 20090109
  Serious: Yes (Other)
  Sender: FDA-Public Use
  Company Number: 163-20785-07060236

PATIENT
  Age: 81 Year
  Sex: Male

DRUGS (11)
  1. THALOMID [Suspect]
     Indication: MULTIPLE MYELOMA
     Dosage: 50 MG, 1 IN 1 D, ORAL ; 50 MG, ORAL
     Route: 048
     Dates: start: 20070418, end: 20070530
  2. THALOMID [Suspect]
     Indication: MULTIPLE MYELOMA
     Dosage: 50 MG, 1 IN 1 D, ORAL ; 50 MG, ORAL
     Route: 048
     Dates: start: 20070621
  3. AVALIDE (KARVEA HCT) [Concomitant]
  4. FOLATE (FOLIC ACID) [Concomitant]
  5. OXYBUTNIN (OXYBUTYNIN) [Concomitant]
  6. GLUCOSAMINE (GLUCOSAMINE) [Concomitant]
  7. ACETAMINOPHEN [Concomitant]
  8. HYDROCHLOROTHIAZIDE [Concomitant]
  9. PAMIDRONATE DISODIUM [Concomitant]
  10. NORTRIPTYLINE HCL [Concomitant]
  11. MULTIVITAMIN [Concomitant]

REACTIONS (4)
  - BOWEL MOVEMENT IRREGULARITY [None]
  - CONSTIPATION [None]
  - NAUSEA [None]
  - STOMACH DISCOMFORT [None]
